FAERS Safety Report 11271993 (Version 1)
Quarter: 2015Q3

REPORT INFORMATION
  Report Type: Spontaneous
  Country: US (occurrence: None)
  Receive Date: 20150713
  Receipt Date: 20150713
  Transmission Date: 20151125
  Serious: Yes (Hospitalization)
  Sender: FDA-Public Use
  Company Number: None

PATIENT
  Age: 17 Year
  Sex: Male
  Weight: 56.7 kg

DRUGS (6)
  1. EPIDUO [Concomitant]
     Active Substance: ADAPALENE\BENZOYL PEROXIDE
  2. DOXYCLYCINE [Concomitant]
  3. GUMMY MULTI-VITES [Concomitant]
  4. COMPAZINE [Suspect]
     Active Substance: PROCHLORPERAZINE MALEATE
     Indication: NAUSEA
     Route: 048
     Dates: start: 20150302, end: 20150310
  5. BIOTEN [Concomitant]
  6. DEXILANT [Concomitant]
     Active Substance: DEXLANSOPRAZOLE

REACTIONS (3)
  - Muscle tightness [None]
  - Dyspnoea [None]
  - Seizure [None]

NARRATIVE: CASE EVENT DATE: 20150310
